FAERS Safety Report 8049808 (Version 3)
Quarter: 2018Q2

REPORT INFORMATION
  Report Type: Spontaneous
  Country: US (occurrence: US)
  Receive Date: 20110722
  Receipt Date: 20180522
  Transmission Date: 20180711
  Serious: Yes (Death, Other)
  Sender: FDA-Public Use
  Company Number: US-NAPPMUNDI-USA-2011-0071858

PATIENT
  Age: 22 Year
  Sex: Male

DRUGS (8)
  1. HYDROMORPHONE HCL (SIMILAR TO NDA 21-044) [Suspect]
     Active Substance: HYDROMORPHONE HYDROCHLORIDE
     Indication: DRUG ABUSE
     Route: 065
  2. MORPHINE SULFATE (SIMILAR TO NDA 19-516) [Suspect]
     Active Substance: MORPHINE SULFATE
     Indication: INTERVERTEBRAL DISC INJURY
  3. HYDROCODONE                        /00060002/ [Suspect]
     Active Substance: HYDROCODONE
     Indication: DRUG ABUSE
     Route: 065
  4. ALPRAZOLAM. [Suspect]
     Active Substance: ALPRAZOLAM
     Indication: DRUG ABUSE
     Route: 065
  5. OXYMORPHONE [Suspect]
     Active Substance: OXYMORPHONE
     Indication: DRUG ABUSE
     Route: 065
  6. OXYCODONE HYDROCHLORIDE (SIMILAR TO NDA 22-272) [Suspect]
     Active Substance: OXYCODONE HYDROCHLORIDE
     Indication: DRUG ABUSE
     Route: 065
  7. MORPHINE SULFATE (SIMILAR TO NDA 19-516) [Suspect]
     Active Substance: MORPHINE SULFATE
     Indication: DRUG ABUSE
     Route: 065
  8. OXYCONTIN [Suspect]
     Active Substance: OXYCODONE HYDROCHLORIDE
     Indication: INTERVERTEBRAL DISC INJURY
     Route: 048

REACTIONS (10)
  - Unresponsive to stimuli [Not Recovered/Not Resolved]
  - Accidental overdose [Fatal]
  - Depressed level of consciousness [Not Recovered/Not Resolved]
  - Syncope [Not Recovered/Not Resolved]
  - Euphoric mood [Unknown]
  - Drug abuse [Unknown]
  - Pneumonia aspiration [Fatal]
  - Loss of consciousness [Not Recovered/Not Resolved]
  - Respiratory arrest [Fatal]
  - Pulmonary oedema [Fatal]

NARRATIVE: CASE EVENT DATE: 20110519
